FAERS Safety Report 5591125-6 (Version None)
Quarter: 2008Q1

REPORT INFORMATION
  Report Type: 
  Country: None (occurrence: None)
  Receive Date: 20080110
  Receipt Date: 20080103
  Transmission Date: 20080703
  Serious: Yes (Other)
  Sender: FDA-Public Use
  Company Number: 2008SP000181

PATIENT
  Sex: Female
  Weight: 85 kg

DRUGS (11)
  1. INTRON A [Suspect]
     Indication: THROMBOCYTOPENIA
     Dosage: SEE IMAGE
     Dates: start: 19960801
  2. INTRON A [Suspect]
     Indication: THROMBOCYTOPENIA
     Dosage: SEE IMAGE
     Dates: start: 20020901
  3. INTRON A [Suspect]
     Indication: THROMBOCYTOPENIA
     Dosage: SEE IMAGE
     Dates: start: 20030101
  4. INTRON A [Suspect]
     Indication: THROMBOCYTOPENIA
     Dosage: SEE IMAGE
     Dates: start: 20031101
  5. INTRON A [Suspect]
     Indication: THROMBOCYTOPENIA
     Dosage: SEE IMAGE
     Dates: start: 20041101
  6. INTRON A [Suspect]
     Indication: THROMBOCYTOPENIA
     Dosage: SEE IMAGE
     Dates: start: 20051001
  7. INTRON A [Suspect]
     Indication: THROMBOCYTOPENIA
     Dosage: SEE IMAGE
     Dates: start: 20060501
  8. CORDARONE [Concomitant]
  9. FLECAIN [Concomitant]
  10. SOPROL [Concomitant]
  11. ANTICOAGULANT [Concomitant]

REACTIONS (13)
  - ANTI-THYROID ANTIBODY POSITIVE [None]
  - ARRHYTHMIA [None]
  - AUTOIMMUNE THYROIDITIS [None]
  - BASEDOW'S DISEASE [None]
  - BLOOD THYROID STIMULATING HORMONE DECREASED [None]
  - CONDITION AGGRAVATED [None]
  - DRUG INTOLERANCE [None]
  - HAEMOGLOBIN INCREASED [None]
  - HYPERTHYROIDISM [None]
  - HYPOTHYROIDISM [None]
  - PLATELET COUNT DECREASED [None]
  - POLYCYTHAEMIA [None]
  - THROMBOCYTHAEMIA [None]
